FAERS Safety Report 22104128 (Version 1)
Quarter: 2023Q1

REPORT INFORMATION
  Report Type: Spontaneous
  Country: US (occurrence: US)
  Receive Date: 20230316
  Receipt Date: 20230316
  Transmission Date: 20230418
  Serious: No
  Sender: FDA-Public Use
  Company Number: US-SANOFI-01528044

PATIENT
  Age: 8 Month
  Sex: Female

DRUGS (1)
  1. DUPIXENT [Suspect]
     Active Substance: DUPILUMAB
     Indication: Dermatitis atopic
     Dosage: UNK
     Dates: start: 202301

REACTIONS (3)
  - White blood cell count increased [Unknown]
  - Hypersensitivity [Unknown]
  - Eosinophilia [Unknown]

NARRATIVE: CASE EVENT DATE: 20230101
